FAERS Safety Report 10783009 (Version 1)
Quarter: 2015Q1

REPORT INFORMATION
  Report Type: Spontaneous
  Country: DK (occurrence: NO)
  Receive Date: 20150210
  Receipt Date: 20150210
  Transmission Date: 20150721
  Serious: Yes (Disabling)
  Sender: FDA-Public Use
  Company Number: NO-FRI-1000074346

PATIENT
  Age: 19 Year
  Sex: Female

DRUGS (2)
  1. ZELDOX [Suspect]
     Active Substance: ZIPRASIDONE
     Indication: SCHIZOPHRENIA
     Dates: start: 2008, end: 201105
  2. ESCITALOPRAM [Suspect]
     Active Substance: ESCITALOPRAM OXALATE
     Indication: PRODUCT USED FOR UNKNOWN INDICATION

REACTIONS (6)
  - Facial spasm [Recovered/Resolved]
  - Muscle twitching [Not Recovered/Not Resolved]
  - Limb injury [Not Recovered/Not Resolved]
  - Paraesthesia [None]
  - Activities of daily living impaired [Not Recovered/Not Resolved]
  - Restlessness [None]

NARRATIVE: CASE EVENT DATE: 2008
